FAERS Safety Report 10469872 (Version 1)
Quarter: 2014Q3

REPORT INFORMATION
  Report Type: Spontaneous
  Country: GB (occurrence: GB)
  Receive Date: 20140923
  Receipt Date: 20140923
  Transmission Date: 20150326
  Serious: Yes (Life-Threatening, Other)
  Sender: FDA-Public Use
  Company Number: GB-JNJFOC-20140918033

PATIENT
  Age: 66 Year
  Sex: Male
  Weight: 97.7 kg

DRUGS (17)
  1. DAILY-VITE [Concomitant]
     Indication: PERITONEAL DIALYSIS
     Route: 065
  2. ATORVASTATIN [Concomitant]
     Active Substance: ATORVASTATIN
     Indication: HYPERCHOLESTEROLAEMIA
     Dosage: 40 (UNSPECIFIED UNIT)
     Route: 065
  3. ATORVASTATIN [Concomitant]
     Active Substance: ATORVASTATIN
     Indication: HYPERCHOLESTEROLAEMIA
     Dosage: 20 (UNSPECIFIED UNIT)
     Route: 065
     Dates: start: 2013
  4. BEZAFIBRATE [Concomitant]
     Active Substance: BEZAFIBRATE
     Indication: HYPERCHOLESTEROLAEMIA
     Dosage: 200 (UNSPECIFIED UNIT); AFTER DIALYSIS TREATMENT
     Route: 065
  5. LANTUS [Concomitant]
     Active Substance: INSULIN GLARGINE
     Indication: TYPE 2 DIABETES MELLITUS
     Dosage: 100 UNITS/ML
     Route: 065
  6. CALCEOS [Concomitant]
     Active Substance: CALCIUM CARBONATE\CHOLECALCIFEROL
     Indication: RENAL FAILURE CHRONIC
     Dosage: 500 MG/400 UNIT
     Route: 065
  7. LACTULOSE. [Concomitant]
     Active Substance: LACTULOSE
     Indication: CONSTIPATION
     Dosage: 15 (UNSPECIFIED UNIT); 3.1-3.7G/5ML
     Route: 065
  8. ATORVASTATIN [Concomitant]
     Active Substance: ATORVASTATIN
     Indication: TYPE 2 DIABETES MELLITUS
     Dosage: 40 (UNSPECIFIED UNIT)
     Route: 065
  9. HYDROXYZINE [Concomitant]
     Active Substance: HYDROXYZINE\HYDROXYZINE HYDROCHLORIDE
     Indication: PRURITUS
     Dosage: 25 (UNSPECIFIED UNIT); TAKEN AT NIGHT
     Route: 065
  10. COCODAMOL [Suspect]
     Active Substance: ACETAMINOPHEN\CODEINE PHOSPHATE
     Indication: PAIN
     Dosage: 30/500 MG
     Route: 065
     Dates: start: 20140804, end: 20140805
  11. LINAGLIPTIN [Concomitant]
     Active Substance: LINAGLIPTIN
     Indication: TYPE 2 DIABETES MELLITUS
     Dosage: 5 (UNSPECIFIED UNIT)
     Route: 065
  12. SEVELAMER [Concomitant]
     Active Substance: SEVELAMER
     Indication: RENAL FAILURE CHRONIC
     Dosage: 1600 (UNSPECIFIED UNIT); TAKE 2 THREE TIMES A DAY WITH FOOD
     Route: 065
  13. ATORVASTATIN [Concomitant]
     Active Substance: ATORVASTATIN
     Indication: TYPE 2 DIABETES MELLITUS
     Dosage: 20 (UNSPECIFIED UNIT)
     Route: 065
     Dates: start: 2013
  14. SENNA [Concomitant]
     Active Substance: SENNA LEAF\SENNOSIDES\SENNOSIDES A AND B
     Indication: CONSTIPATION
     Dosage: 7.5 (UNSPECIFIED UNIT) 1 OR 2 AT NIGHT
     Route: 065
  15. PREGABALIN. [Concomitant]
     Active Substance: PREGABALIN
     Indication: NEUROPATHY PERIPHERAL
     Dosage: 100 (UNSPECIFIED UNIT)
     Route: 065
  16. LANSOPRAZOLE. [Concomitant]
     Active Substance: LANSOPRAZOLE
     Indication: REFLUX GASTRITIS
     Dosage: 30 (UNSPECIFIED UNIT)
     Route: 065
  17. DARBEPOETIN ALFA [Concomitant]
     Active Substance: DARBEPOETIN ALFA
     Indication: RENAL FAILURE CHRONIC
     Dosage: 10 MCG/0.4 ML SOLUTION
     Route: 065

REACTIONS (2)
  - Overdose [Unknown]
  - Toxicity to various agents [Recovered/Resolved]

NARRATIVE: CASE EVENT DATE: 20140805
